FAERS Safety Report 7837646-4 (Version None)
Quarter: 2011Q4

REPORT INFORMATION
  Report Type: 
  Country: None (occurrence: None)
  Receive Date: 20111024
  Receipt Date: 20111017
  Transmission Date: 20120403
  Serious: Yes (Hospitalization)
  Sender: FDA-Public Use
  Company Number: US-ABBOTT-11P-163-0837982-00

PATIENT
  Age: 51 Year
  Sex: Female

DRUGS (20)
  1. HUMIRA [Suspect]
     Dates: start: 20110601, end: 20110601
  2. CALCIUM CARBONATE [Concomitant]
     Indication: PRODUCT USED FOR UNKNOWN INDICATION
  3. VIT D [Concomitant]
     Indication: PRODUCT USED FOR UNKNOWN INDICATION
  4. MULTI-VITAMIN [Concomitant]
     Indication: PRODUCT USED FOR UNKNOWN INDICATION
  5. PROZAC [Concomitant]
     Indication: DEPRESSION
  6. REGLAN [Suspect]
     Indication: NAUSEA
  7. XANAX [Concomitant]
     Indication: ANXIETY
     Dosage: 3 IN 1 DAY AS NEEDED
  8. PREDNISONE [Concomitant]
     Indication: PRODUCT USED FOR UNKNOWN INDICATION
  9. OMEPRAZOLE [Concomitant]
     Indication: GASTROOESOPHAGEAL REFLUX DISEASE
  10. FUROSEMIDE [Concomitant]
     Indication: OEDEMA PERIPHERAL
  11. CYMBALTA [Concomitant]
     Indication: DEPRESSION
  12. ONDANSETRON [Concomitant]
     Indication: NAUSEA
     Dosage: 1 EVERY 4-6 HOURS AS NEEDED
  13. HUMIRA [Suspect]
     Indication: CROHN'S DISEASE
     Dates: start: 20110601
  14. PENTASA [Concomitant]
     Indication: PRODUCT USED FOR UNKNOWN INDICATION
  15. HYDROCODONE BITARTRATE [Concomitant]
     Indication: ARTHRALGIA
     Dosage: 10-50 MG EVERY SIX HOURS
  16. METOPROLOL TARTRATE [Concomitant]
     Indication: HYPERTENSION
  17. ASPIRIN [Concomitant]
     Indication: PROPHYLAXIS
  18. FISH OIL [Concomitant]
     Indication: PRODUCT USED FOR UNKNOWN INDICATION
  19. NABUMETONE [Concomitant]
     Indication: ARTHRALGIA
  20. HUMIRA [Suspect]
     Dates: start: 20110601, end: 20110601

REACTIONS (19)
  - DEPRESSION [None]
  - ARTHRALGIA [None]
  - GAIT DISTURBANCE [None]
  - FEELING HOT [None]
  - VOMITING [None]
  - SKIN LESION [None]
  - MYALGIA [None]
  - SUICIDE ATTEMPT [None]
  - ASTHENIA [None]
  - MIGRAINE [None]
  - DIARRHOEA [None]
  - HYPERHIDROSIS [None]
  - URINARY TRACT INFECTION [None]
  - WALKING AID USER [None]
  - PARAESTHESIA [None]
  - ANAESTHESIA [None]
  - CONFUSIONAL STATE [None]
  - NAUSEA [None]
  - FEELING COLD [None]
